FAERS Safety Report 17326626 (Version 2)
Quarter: 2020Q1

REPORT INFORMATION
  Report Type: Report from Study
  Country: US (occurrence: US)
  Receive Date: 20200127
  Receipt Date: 20200217
  Transmission Date: 20200409
  Serious: No
  Sender: FDA-Public Use
  Company Number: US-AMGEN-USASP2020010327

PATIENT
  Age: 61 Year
  Sex: Female

DRUGS (3)
  1. WELCHOL [Concomitant]
     Active Substance: COLESEVELAM HYDROCHLORIDE
     Dosage: UNK
  2. REPATHA [Suspect]
     Active Substance: EVOLOCUMAB
     Indication: HYPERCHOLESTEROLAEMIA
     Dosage: 140 MILLIGRAM, Q2WK
     Route: 065
     Dates: start: 201905, end: 202001
  3. ZETIA [Concomitant]
     Active Substance: EZETIMIBE
     Dosage: UNK

REACTIONS (11)
  - Alopecia [Unknown]
  - Myalgia [Unknown]
  - Trichorrhexis [Unknown]
  - Glycosylated haemoglobin increased [Unknown]
  - Influenza like illness [Unknown]
  - Nasopharyngitis [Unknown]
  - Rash macular [Unknown]
  - Ear infection [Unknown]
  - Blood cholesterol increased [Unknown]
  - Back pain [Unknown]
  - Arthralgia [Unknown]

NARRATIVE: CASE EVENT DATE: 2019
